FAERS Safety Report 9216953 (Version 2)
Quarter: 2013Q2

REPORT INFORMATION
  Report Type: Spontaneous
  Country: US (occurrence: None)
  Receive Date: 20130403
  Receipt Date: 20130408
  Transmission Date: 20140414
  Serious: Yes (Disabling)
  Sender: FDA-Public Use
  Company Number: 1303-386

PATIENT
  Age: 70 Year
  Sex: Female
  Weight: 86.64 kg

DRUGS (13)
  1. VEGF TRAP-EYE (INJECTION) (VEGF TRAP) [Suspect]
     Indication: MACULAR OEDEMA
     Dosage: INTRAVITREAL
     Dates: start: 20120103
  2. GLIPIZIDE (GLIPIZIDE) [Concomitant]
  3. VITAMIN D (ERGOCALCIFEROL) [Concomitant]
  4. HYDROCHLOROTHIAZIDE (HYDROCHLOROTHIAZIDE) [Concomitant]
  5. PRAVASTATIN (PRAVASTATIN) [Concomitant]
  6. FLAXSEED OIL (LINUM USITATISSIMUM SEED OIL) [Concomitant]
  7. ASPIRIN (ACETYLSALICYLIC ACID) [Concomitant]
  8. VITAMIN B12 (CYANOCOBALAMIN) [Concomitant]
  9. NORVASC (AMLODIPINE BESILATE) [Concomitant]
  10. PRAVACHOL (PRAVASTATIN SODIUM) [Concomitant]
  11. NOVOLIN 70/30 (HUMAN MIXTARD) [Concomitant]
  12. TRAMADOL (TRAMADOL) [Concomitant]
  13. MIRALAX [Concomitant]

REACTIONS (5)
  - Visual acuity reduced [None]
  - Fall [None]
  - Mental status changes [None]
  - Cerebrovascular accident [None]
  - Mastoiditis [None]
